FAERS Safety Report 8530170-5 (Version None)
Quarter: 2012Q3

REPORT INFORMATION
  Report Type: 
  Country: None (occurrence: None)
  Receive Date: 20120723
  Receipt Date: 20120719
  Transmission Date: 20120928
  Serious: Yes (Other)
  Sender: FDA-Public Use
  Company Number: PHFR2012GB004078

PATIENT

DRUGS (1)
  1. DIOVAN [Suspect]
     Dates: start: 20120501

REACTIONS (3)
  - FALL [None]
  - BLOOD PRESSURE DECREASED [None]
  - CONTUSION [None]
